FAERS Safety Report 9731585 (Version 1)
Quarter: 2013Q4

REPORT INFORMATION
  Report Type: Spontaneous
  Country: JP (occurrence: None)
  Receive Date: 20131203
  Receipt Date: 20131203
  Transmission Date: 20140711
  Serious: Yes (Death, Life-Threatening, Other)
  Sender: FDA-Public Use
  Company Number: CO-OR-JP-2013-206

PATIENT
  Age: 69 Year
  Sex: Female

DRUGS (1)
  1. PREDNISOLONE (PREDNISOLONE) [Suspect]
     Indication: ORGANISING PNEUMONIA

REACTIONS (5)
  - Autoimmune hepatitis [None]
  - Hepatic failure [None]
  - Diverticular perforation [None]
  - Diverticulitis intestinal haemorrhagic [None]
  - Cytomegalovirus gastritis [None]
